FAERS Safety Report 11822270 (Version 1)
Quarter: 2015Q4

REPORT INFORMATION
  Report Type: Spontaneous
  Country: US (occurrence: US)
  Receive Date: 20151210
  Receipt Date: 20151210
  Transmission Date: 20160305
  Serious: Yes (Hospitalization)
  Sender: FDA-Public Use
  Company Number: US-LPDUSPRD-20150980

PATIENT
  Sex: Female

DRUGS (1)
  1. MAGNESIUM SULFATE INJECTION, USP (2602-25) [Suspect]
     Active Substance: MAGNESIUM SULFATE
     Dosage: DOSE UNKNOWN
     Route: 042

REACTIONS (1)
  - Respiratory failure [Unknown]
